FAERS Safety Report 9344230 (Version 1)
Quarter: 2013Q2

REPORT INFORMATION
  Report Type: Report from Study
  Country: CA (occurrence: CA)
  Receive Date: 20130612
  Receipt Date: 20130612
  Transmission Date: 20140414
  Serious: Yes (Hospitalization)
  Sender: FDA-Public Use
  Company Number: CA-ABBOTT-13P-028-1102972-00

PATIENT
  Age: 62 Year
  Sex: Female

DRUGS (1)
  1. HUMIRA [Suspect]
     Indication: PSORIASIS
     Route: 058
     Dates: start: 20050608

REACTIONS (2)
  - Sciatica [Recovering/Resolving]
  - Abasia [Unknown]
